FAERS Safety Report 5443006-6 (Version None)
Quarter: 2007Q3

REPORT INFORMATION
  Report Type: 
  Country: None (occurrence: None)
  Receive Date: 20070905
  Receipt Date: 20070827
  Transmission Date: 20080115
  Serious: Yes (Hospitalization)
  Sender: FDA-Public Use
  Company Number: PHEH2007US11519

PATIENT
  Age: 49 Year
  Sex: Male
  Weight: 132.43 kg

DRUGS (13)
  1. DIOVAN [Suspect]
     Indication: HYPERTENSION
     Dosage: UNK, UNK
     Route: 048
  2. BUSPAR [Concomitant]
  3. PROZAC [Concomitant]
  4. NEXIUM [Concomitant]
  5. KLONOPIN [Concomitant]
  6. ASPIRIN [Concomitant]
     Dosage: 81 MG, UNK
  7. LITHIUM CARBONATE [Concomitant]
  8. VERAPAMIL [Concomitant]
  9. PLAVIX [Concomitant]
  10. ALDACTONE [Concomitant]
  11. TOPROL-XL [Concomitant]
  12. ZOCOR [Concomitant]
  13. OMACOR [Concomitant]

REACTIONS (3)
  - CHEST PAIN [None]
  - CORONARY ARTERIAL STENT INSERTION [None]
  - MYOCARDIAL INFARCTION [None]
